FAERS Safety Report 12097867 (Version 1)
Quarter: 2016Q1

REPORT INFORMATION
  Report Type: Other
  Country: US (occurrence: US)
  Receive Date: 20160221
  Receipt Date: 20160221
  Transmission Date: 20160526
  Serious: No
  Sender: FDA-Public Use
  Company Number: US-ACORDA-ACO_111420_2015

PATIENT
  Sex: Female
  Weight: 86.17 kg

DRUGS (6)
  1. AMPYRA [Suspect]
     Active Substance: DALFAMPRIDINE
     Indication: MULTIPLE SCLEROSIS
     Dosage: 10 MG, QD
     Route: 048
     Dates: start: 2015, end: 20150525
  2. ALBUTEROL HFA [Concomitant]
     Active Substance: ALBUTEROL SULFATE
     Indication: ASTHMA
     Dosage: 90 ?G, 2 PUFFS
     Route: 055
  3. SIMVASTATIN. [Concomitant]
     Active Substance: SIMVASTATIN
     Indication: LOW DENSITY LIPOPROTEIN INCREASED
     Dosage: 20 MG, 2 HS
     Route: 048
     Dates: start: 20130114
  4. AMPYRA [Suspect]
     Active Substance: DALFAMPRIDINE
     Indication: GAIT DISTURBANCE
     Dosage: 10 MG, BID
     Route: 048
     Dates: start: 20150226
  5. GILENYA [Concomitant]
     Active Substance: FINGOLIMOD HYDROCHLORIDE
     Indication: MULTIPLE SCLEROSIS
     Dosage: UNK, QD
     Route: 048
     Dates: start: 201503
  6. TRAMADOL. [Concomitant]
     Active Substance: TRAMADOL
     Indication: PAIN
     Dosage: 50 MG, Q 6 HRS
     Route: 048
     Dates: start: 20141006

REACTIONS (7)
  - Oropharyngeal pain [Recovered/Resolved]
  - Inappropriate schedule of drug administration [Unknown]
  - Urinary tract infection [Unknown]
  - Pharyngeal oedema [Recovered/Resolved]
  - Dizziness [Recovered/Resolved]
  - Balance disorder [Recovered/Resolved]
  - Asthenia [Unknown]

NARRATIVE: CASE EVENT DATE: 2015
